FAERS Safety Report 4899369-3 (Version None)
Quarter: 2006Q1

REPORT INFORMATION
  Report Type: 
  Country: None (occurrence: None)
  Receive Date: 20060131
  Receipt Date: 20060119
  Transmission Date: 20060701
  Serious: Yes (Life-Threatening, Hospitalization)
  Sender: FDA-Public Use
  Company Number: 2006011002

PATIENT
  Age: 44 Year
  Sex: Male

DRUGS (5)
  1. SULFASALAZINE [Suspect]
     Indication: RHEUMATOID ARTHRITIS
     Dosage: 1.5 GRAM (1 D), ORAL
     Route: 048
     Dates: start: 20051115, end: 20060103
  2. MELOXICAM (MELOXICAM) [Concomitant]
  3. GLUCOSAMINE (GLUCOSAMINE) [Concomitant]
  4. NORTRIPTYLINE HCL [Concomitant]
  5. HYDROCORTISONE [Concomitant]

REACTIONS (1)
  - NEUTROPENIC SEPSIS [None]
